FAERS Safety Report 4511558-6 (Version None)
Quarter: 2004Q4

REPORT INFORMATION
  Report Type: 
  Country: None (occurrence: None)
  Receive Date: 20041129
  Receipt Date: 20040927
  Transmission Date: 20050328
  Serious: No
  Sender: FDA-Public Use
  Company Number: US-BRISTOL-MYERS SQUIBB COMPANY-12713665

PATIENT
  Age: 9 Year
  Sex: Male
  Weight: 43 kg

DRUGS (1)
  1. ABILIFY [Suspect]
     Indication: IMPULSIVE BEHAVIOUR
     Dosage: 2.5 MG/DAY:APR, INTERRUPTED: AUG-04, 2.5 EVERY OTHER DAY: SEP-04 TITRATED TO 3/4 OF 5 MG TAB/DAY
     Route: 048
     Dates: start: 20040401

REACTIONS (4)
  - EMOTIONAL DISORDER [None]
  - FLATULENCE [None]
  - SOMNOLENCE [None]
  - WEIGHT INCREASED [None]
